FAERS Safety Report 17648109 (Version 1)
Quarter: 2020Q2

REPORT INFORMATION
  Report Type: Spontaneous
  Country: US (occurrence: US)
  Receive Date: 20200409
  Receipt Date: 20200409
  Transmission Date: 20200713
  Serious: No
  Sender: FDA-Public Use
  Company Number: US-JNJFOC-20200320817

PATIENT
  Age: 76 Year
  Sex: Female

DRUGS (5)
  1. PEPCID AC [Suspect]
     Active Substance: FAMOTIDINE
     Dosage: START DATE: ABOUT A MONTH AGO
     Route: 048
     Dates: start: 2020, end: 2020
  2. PEPCID AC [Suspect]
     Active Substance: FAMOTIDINE
     Indication: ANTACID THERAPY
     Route: 048
     Dates: start: 2020, end: 2020
  3. PEPCID AC [Suspect]
     Active Substance: FAMOTIDINE
     Route: 048
     Dates: start: 2020
  4. PEPCID AC [Suspect]
     Active Substance: FAMOTIDINE
     Route: 048
     Dates: start: 2020, end: 2020
  5. PEPCID AC [Suspect]
     Active Substance: FAMOTIDINE
     Indication: ANTACID THERAPY
     Dosage: START DATE: ABOUT A MONTH AGO
     Route: 048
     Dates: start: 2020, end: 2020

REACTIONS (2)
  - Frequent bowel movements [Recovered/Resolved]
  - Abdominal pain [Recovered/Resolved]

NARRATIVE: CASE EVENT DATE: 2020
